FAERS Safety Report 10520110 (Version 5)
Quarter: 2015Q1

REPORT INFORMATION
  Report Type: Report from Study
  Country: CA (occurrence: CA)
  Receive Date: 20141015
  Receipt Date: 20150113
  Transmission Date: 20150720
  Serious: Yes (Other)
  Sender: FDA-Public Use
  Company Number: CA-ABBVIE-14K-028-1294327-00

PATIENT
  Age: 9 Year
  Sex: Male
  Weight: 26.4 kg

DRUGS (3)
  1. METHOTREXATE [Concomitant]
     Active Substance: METHOTREXATE
     Indication: CROHN^S DISEASE
     Route: 058
     Dates: start: 201402
  2. HUMIRA [Suspect]
     Active Substance: ADALIMUMAB
     Route: 058
     Dates: start: 2014
  3. HUMIRA [Suspect]
     Active Substance: ADALIMUMAB
     Indication: CROHN^S DISEASE
     Route: 058
     Dates: start: 20131029, end: 2014

REACTIONS (12)
  - Dyskinesia [Not Recovered/Not Resolved]
  - Amnesia [Not Recovered/Not Resolved]
  - Tic [Not Recovered/Not Resolved]
  - Blepharospasm [Not Recovered/Not Resolved]
  - Dyskinesia [Not Recovered/Not Resolved]
  - Crying [Recovered/Resolved]
  - Head titubation [Not Recovered/Not Resolved]
  - Tourette^s disorder [Not Recovered/Not Resolved]
  - Tic [Not Recovered/Not Resolved]
  - Hyperphagia [Unknown]
  - Staring [Not Recovered/Not Resolved]
  - Hunger [Not Recovered/Not Resolved]

NARRATIVE: CASE EVENT DATE: 2013
